FAERS Safety Report 7224924-5 (Version None)
Quarter: 2011Q1

REPORT INFORMATION
  Report Type: 
  Country: None (occurrence: None)
  Receive Date: 20110113
  Receipt Date: 20110111
  Transmission Date: 20110831
  Serious: Yes (Other)
  Sender: FDA-Public Use
  Company Number: GB-ROCHE-752549

PATIENT
  Age: 39 Year
  Sex: Male

DRUGS (1)
  1. LARIAM [Suspect]
     Indication: MALARIA PROPHYLAXIS
     Route: 048
     Dates: start: 20101112, end: 20101113

REACTIONS (5)
  - ATAXIA [None]
  - AGITATION [None]
  - AMNESIA [None]
  - CONFUSIONAL STATE [None]
  - URINARY INCONTINENCE [None]
